FAERS Safety Report 22088315 (Version 1)
Quarter: 2023Q1

REPORT INFORMATION
  Report Type: Spontaneous
  Country: GB (occurrence: GB)
  Receive Date: 20230313
  Receipt Date: 20230313
  Transmission Date: 20230418
  Serious: Yes (Other)
  Sender: FDA-Public Use
  Company Number: None

PATIENT
  Age: 21 Year
  Sex: Female

DRUGS (1)
  1. MIRTAZAPINE [Suspect]
     Active Substance: MIRTAZAPINE
     Indication: Depression
     Dosage: 30MG AT NIGHT, REDUCED TO 0

REACTIONS (4)
  - Hallucination [Recovered/Resolved]
  - Anxiety [Recovering/Resolving]
  - Agitation [Recovered/Resolved]
  - Emotional distress [Recovered/Resolved]
